FAERS Safety Report 8965978 (Version 2)
Quarter: 2013Q1

REPORT INFORMATION
  Report Type: Spontaneous
  Country: FR (occurrence: FR)
  Receive Date: 20121217
  Receipt Date: 20130121
  Transmission Date: 20140127
  Serious: Yes (Hospitalization, Other)
  Sender: FDA-Public Use
  Company Number: PHHY2012FR114990

PATIENT
  Age: 71 Year
  Sex: Female

DRUGS (4)
  1. ACLASTA [Suspect]
     Indication: OSTEOPOROSIS
     Dosage: UNK UKN, UNK
     Route: 042
     Dates: start: 20121102
  2. UVEDOSE [Concomitant]
     Dosage: 100000 IU, UNK
     Dates: start: 20121031
  3. ESIDREX [Concomitant]
     Dosage: 25 MG, UNK
     Dates: start: 20101211
  4. ELISOR [Concomitant]
     Dosage: 20 MG, UNK
     Dates: start: 20111215

REACTIONS (8)
  - Diaphragmatic paralysis [Unknown]
  - Hypoxia [Unknown]
  - Dyspnoea [Recovering/Resolving]
  - Oral herpes [Unknown]
  - Injury [Unknown]
  - Pyrexia [Recovered/Resolved]
  - Viral infection [Unknown]
  - Influenza like illness [Unknown]
